FAERS Safety Report 25409310 (Version 2)
Quarter: 2025Q2

REPORT INFORMATION
  Report Type: Spontaneous
  Country: FR (occurrence: FR)
  Receive Date: 20250607
  Receipt Date: 20250620
  Transmission Date: 20250717
  Serious: Yes (Other)
  Sender: ALEXION PHARMACEUTICALS
  Company Number: FR-AstraZeneca-CH-00884322AM

PATIENT
  Age: 81 Year

DRUGS (1)
  1. XIGDUO XR [Suspect]
     Active Substance: DAPAGLIFLOZIN PROPANEDIOL\METFORMIN HYDROCHLORIDE
     Indication: Diabetes mellitus

REACTIONS (11)
  - Cerebrovascular accident [Unknown]
  - Limb injury [Unknown]
  - Musculoskeletal stiffness [Unknown]
  - Fall [Unknown]
  - Headache [Unknown]
  - Balance disorder [Unknown]
  - Drug ineffective [Unknown]
  - Incontinence [Unknown]
  - Bone pain [Unknown]
  - Blood glucose abnormal [Unknown]
  - Intentional product misuse [Unknown]
